FAERS Safety Report 25681001 (Version 1)
Quarter: 2025Q3

REPORT INFORMATION
  Report Type: Spontaneous
  Country: US (occurrence: US)
  Receive Date: 20250814
  Receipt Date: 20250814
  Transmission Date: 20251020
  Serious: Yes (Life-Threatening, Hospitalization, Other)
  Sender: REGENERON
  Company Number: US-REGENERON PHARMACEUTICALS, INC.-2025-127868

PATIENT
  Sex: Female

DRUGS (1)
  1. PRALUENT [Suspect]
     Active Substance: ALIROCUMAB
     Indication: Hypercholesterolaemia
     Dosage: 75 MG/ML, Q2W (EVERY 2 WEEKS)
     Route: 058
     Dates: start: 20231106

REACTIONS (3)
  - Myocardial infarction [Recovered/Resolved]
  - Fall [Recovered/Resolved]
  - Orthostatic hypotension [Unknown]

NARRATIVE: CASE EVENT DATE: 20250325
